FAERS Safety Report 5652882-3 (Version None)
Quarter: 2008Q1

REPORT INFORMATION
  Report Type: 
  Country: None (occurrence: None)
  Receive Date: 20080306
  Receipt Date: 20080226
  Transmission Date: 20080703
  Serious: Yes (Other)
  Sender: FDA-Public Use
  Company Number: FR-SANOFI-SYNTHELABO-A01200802088

PATIENT
  Sex: Male

DRUGS (2)
  1. KARDEGIC [Concomitant]
     Indication: AORTIC DILATATION
     Dosage: UNK
     Route: 065
     Dates: start: 20071101
  2. PLAVIX [Suspect]
     Indication: AORTIC DILATATION
     Dosage: UNK
     Route: 048
     Dates: start: 20070101

REACTIONS (1)
  - BONE MARROW FAILURE [None]
